FAERS Safety Report 23084645 (Version 2)
Quarter: 2024Q2

REPORT INFORMATION
  Report Type: Spontaneous
  Country: US (occurrence: US)
  Receive Date: 20231019
  Receipt Date: 20240509
  Transmission Date: 20240716
  Serious: Yes (Hospitalization)
  Sender: FDA-Public Use
  Company Number: US-RADIUS HEALTH, INC.-2023US005147

PATIENT
  Age: 82 Year
  Sex: Female

DRUGS (1)
  1. TYMLOS [Suspect]
     Active Substance: ABALOPARATIDE
     Indication: Senile osteoporosis
     Dosage: 80 MICROGRAM, QD
     Route: 058
     Dates: start: 20230420, end: 20240426

REACTIONS (7)
  - Hypercalcaemia [Unknown]
  - Dysarthria [Unknown]
  - Dizziness [Unknown]
  - Ophthalmic migraine [Unknown]
  - Speech disorder [Unknown]
  - Motor dysfunction [Unknown]
  - Intentional dose omission [Unknown]

NARRATIVE: CASE EVENT DATE: 20240426
